FAERS Safety Report 6791991-2 (Version None)
Quarter: 2010Q2

REPORT INFORMATION
  Report Type: 
  Country: None (occurrence: None)
  Receive Date: 20100624
  Receipt Date: 20080716
  Transmission Date: 20101027
  Serious: No
  Sender: FDA-Public Use
  Company Number: US-PFIZER INC-2008060075

PATIENT
  Sex: Female
  Weight: 63.636 kg

DRUGS (3)
  1. AROMASIN [Suspect]
     Indication: BREAST CANCER
     Dates: end: 20080101
  2. MICARDIS [Concomitant]
  3. ALTACE [Concomitant]

REACTIONS (1)
  - PRURITUS [None]
